FAERS Safety Report 4708680-8 (Version None)
Quarter: 2005Q3

REPORT INFORMATION
  Report Type: 
  Country: None (occurrence: None)
  Receive Date: 20050705
  Receipt Date: 20050624
  Transmission Date: 20060218
  Serious: No
  Sender: FDA-Public Use
  Company Number: 2005-129885-NL

PATIENT
  Age: 69 Year
  Sex: Female

DRUGS (3)
  1. MIRTAZAPINE [Suspect]
     Dosage: 15 MG/30 MG/45 MG  ORAL
     Route: 048
     Dates: start: 20040910, end: 20040910
  2. MIRTAZAPINE [Suspect]
     Dosage: 15 MG/30 MG/45 MG  ORAL
     Route: 048
     Dates: start: 20040911, end: 20040916
  3. MIRTAZAPINE [Suspect]
     Dosage: 15 MG/30 MG/45 MG  ORAL
     Route: 048
     Dates: start: 20040917, end: 20041008

REACTIONS (3)
  - PAIN IN EXTREMITY [None]
  - THROMBOPHLEBITIS [None]
  - THROMBOSIS [None]
